FAERS Safety Report 13896022 (Version 1)
Quarter: 2017Q3

REPORT INFORMATION
  Report Type: Spontaneous
  Country: US (occurrence: US)
  Receive Date: 20170823
  Receipt Date: 20170823
  Transmission Date: 20171127
  Serious: No
  Sender: FDA-Public Use
  Company Number: US-TEVA-723399ACC

PATIENT
  Age: 66 Year
  Sex: Female
  Weight: 58.11 kg

DRUGS (6)
  1. METOPROLOL SUCCINATE ER [Suspect]
     Active Substance: METOPROLOL SUCCINATE
     Indication: CHEST PAIN
     Dates: start: 20160906
  2. METOPROLOL SUCCINATE ER [Suspect]
     Active Substance: METOPROLOL SUCCINATE
     Indication: CORONARY ARTERY DISEASE
     Dates: start: 20160923, end: 20161122
  3. METOPROLOL SUCCINATE ER [Suspect]
     Active Substance: METOPROLOL SUCCINATE
     Indication: CARDIAC PROCEDURE COMPLICATION
  4. ASPIRIN. [Concomitant]
     Active Substance: ASPIRIN
     Dosage: LOW DOSE
  5. ATORVASTATIN [Concomitant]
     Active Substance: ATORVASTATIN
  6. ATENOLOL. [Concomitant]
     Active Substance: ATENOLOL

REACTIONS (3)
  - Neck pain [Not Recovered/Not Resolved]
  - Arthralgia [Unknown]
  - Abdominal discomfort [Unknown]

NARRATIVE: CASE EVENT DATE: 201609
